FAERS Safety Report 10521550 (Version 1)
Quarter: 2014Q4

REPORT INFORMATION
  Report Type: Spontaneous
  Country: FR (occurrence: FR)
  Receive Date: 20141016
  Receipt Date: 20141016
  Transmission Date: 20150528
  Serious: Yes (Other)
  Sender: FDA-Public Use
  Company Number: FR-SUN PHARMACEUTICAL INDUSTRIES LTD-2014SUN02120

PATIENT

DRUGS (2)
  1. LETROZOLE 2.5 MG FILMCOATED TABLETS [Suspect]
     Active Substance: LETROZOLE
     Indication: BREAST CANCER METASTATIC
     Dosage: UNK
     Route: 065
  2. CAPECITABINE. [Suspect]
     Active Substance: CAPECITABINE
     Indication: BREAST CANCER METASTATIC
     Dosage: 2500 MG/M2/DAY IN DIVIDED DOSES
     Route: 048
     Dates: end: 201107

REACTIONS (5)
  - Hepatotoxicity [Unknown]
  - Onycholysis [Unknown]
  - Macrocytosis [Unknown]
  - Asthenia [Unknown]
  - Nausea [Unknown]
